FAERS Safety Report 10235836 (Version 1)
Quarter: 2014Q2

REPORT INFORMATION
  Report Type: Spontaneous
  Country: US (occurrence: US)
  Receive Date: 20140613
  Receipt Date: 20140613
  Transmission Date: 20141212
  Serious: Yes (Death, Hospitalization, Other)
  Sender: FDA-Public Use
  Company Number: US-BAYER-2014-085109

PATIENT
  Sex: Male

DRUGS (8)
  1. NIFEDIPINE [Suspect]
     Route: 064
  2. NIFEDIPINE [Suspect]
     Route: 064
  3. SILDENAFIL [Concomitant]
  4. SILDENAFIL [Concomitant]
  5. EPOPROSTENOL [Concomitant]
  6. EPOPROSTENOL [Concomitant]
  7. HEPARIN [Concomitant]
  8. HEPARIN [Concomitant]

REACTIONS (4)
  - Maternal exposure during pregnancy [None]
  - Foetal growth restriction [None]
  - Premature baby [None]
  - Sudden infant death syndrome [Fatal]
